FAERS Safety Report 9611073 (Version 1)
Quarter: 2013Q4

REPORT INFORMATION
  Report Type: Spontaneous
  Country: JP (occurrence: JP)
  Receive Date: 20131009
  Receipt Date: 20131009
  Transmission Date: 20140711
  Serious: Yes (Death, Hospitalization, Other)
  Sender: FDA-Public Use
  Company Number: JP-SPECTRUM PHARMACEUTICALS, INC.-13-F-JP-00270

PATIENT
  Age: 70 Year
  Sex: Male

DRUGS (2)
  1. FLUOROURACIL [Suspect]
     Indication: OESOPHAGEAL SQUAMOUS CELL CARCINOMA
     Dosage: 800 MG/M2, QD ON DAYS 1-5 OF A 28 DAY CYCLE
     Route: 042
  2. CISPLATIN [Suspect]
     Indication: OESOPHAGEAL SQUAMOUS CELL CARCINOMA
     Dosage: 80 MG/M2, QD ON DAY 1
     Route: 042

REACTIONS (2)
  - Pneumonia [Fatal]
  - Acute myeloid leukaemia [Not Recovered/Not Resolved]
